FAERS Safety Report 15030046 (Version 1)
Quarter: 2018Q2

REPORT INFORMATION
  Report Type: Spontaneous
  Country: NL (occurrence: NL)
  Receive Date: 20180619
  Receipt Date: 20180619
  Transmission Date: 20180711
  Serious: Yes (Other)
  Sender: FDA-Public Use
  Company Number: NL-TEVA-2018-NL-906472

PATIENT
  Age: 51 Year
  Sex: Female
  Weight: 50 kg

DRUGS (2)
  1. TAMOXIFEN TABLET 20MG TABLET, 20 MG (MILLIGRAM) [Suspect]
     Active Substance: TAMOXIFEN
     Indication: BREAST CANCER
     Dosage: 1 DOSAGE FORMS DAILY; 1 KEER PER DAG
     Route: 065
     Dates: start: 20180328
  2. LYRICA [Concomitant]
     Active Substance: PREGABALIN
     Route: 065

REACTIONS (7)
  - Arthralgia [Not Recovered/Not Resolved]
  - Headache [Not Recovered/Not Resolved]
  - Arthritis [Unknown]
  - Erythema [Unknown]
  - Dyspnoea [Unknown]
  - Anaphylactic shock [Unknown]
  - Joint swelling [Unknown]

NARRATIVE: CASE EVENT DATE: 20180330
